FAERS Safety Report 15665476 (Version 1)
Quarter: 2018Q4

REPORT INFORMATION
  Report Type: Spontaneous
  Country: US (occurrence: US)
  Receive Date: 20181128
  Receipt Date: 20181128
  Transmission Date: 20190205
  Serious: No
  Sender: FDA-Public Use
  Company Number: US-AMGEN-USASP2018167906

PATIENT

DRUGS (1)
  1. PARSABIV [Suspect]
     Active Substance: ETELCALCETIDE HYDROCHLORIDE
     Indication: CHRONIC KIDNEY DISEASE
     Dosage: 2.5 MG, UNK
     Route: 065
     Dates: start: 201810

REACTIONS (3)
  - Off label use [Unknown]
  - Underdose [Unknown]
  - Blood parathyroid hormone increased [Unknown]

NARRATIVE: CASE EVENT DATE: 2018
